FAERS Safety Report 5921116-4 (Version None)
Quarter: 2008Q4

REPORT INFORMATION
  Report Type: 
  Country: None (occurrence: None)
  Receive Date: 20081016
  Receipt Date: 20081003
  Transmission Date: 20090506
  Serious: Yes (Hospitalization, Other)
  Sender: FDA-Public Use
  Company Number: FR-ELI_LILLY_AND_COMPANY-FR200807005745

PATIENT
  Age: 75 Year
  Sex: Female
  Weight: 50 kg

DRUGS (5)
  1. ZYPREXA [Suspect]
     Indication: AGITATION
     Dosage: 15 MG, DAILY (1/D)
     Route: 042
     Dates: start: 20080726, end: 20080726
  2. ZYPREXA [Suspect]
     Indication: DELUSION
     Dosage: 10 MG, UNK
     Route: 048
     Dates: start: 20080725, end: 20080725
  3. ZYPREXA [Suspect]
     Dosage: 10 MG, DAILY (1/D)
     Route: 048
     Dates: start: 20080727
  4. TERCIAN [Concomitant]
     Indication: AGITATION
     Route: 048
     Dates: start: 20080726
  5. TRANXENE [Concomitant]
     Indication: ANXIETY
     Dates: start: 20080726

REACTIONS (7)
  - ANXIETY [None]
  - CONFUSIONAL STATE [None]
  - CONSTIPATION [None]
  - DELUSION [None]
  - DRUG ADMINISTRATION ERROR [None]
  - HYPOTENSION [None]
  - SEDATION [None]
